FAERS Safety Report 17510920 (Version 2)
Quarter: 2020Q1

REPORT INFORMATION
  Report Type: Spontaneous
  Country: AU (occurrence: AU)
  Receive Date: 20200306
  Receipt Date: 20200317
  Transmission Date: 20200409
  Serious: Yes (Other)
  Sender: FDA-Public Use
  Company Number: NVSC2020AU050541

PATIENT
  Sex: Female

DRUGS (5)
  1. FLUDARABINE PHOSPHATE. [Suspect]
     Active Substance: FLUDARABINE PHOSPHATE
     Indication: PRODUCT USED FOR UNKNOWN INDICATION
     Dosage: UNK
     Route: 065
  2. DASATINIB. [Suspect]
     Active Substance: DASATINIB
     Indication: ACUTE LYMPHOCYTIC LEUKAEMIA
     Dosage: UNK
     Route: 065
  3. BLINATUMOMAB [Suspect]
     Active Substance: BLINATUMOMAB
     Indication: MINIMAL RESIDUAL DISEASE
     Dosage: UNK
     Route: 065
     Dates: start: 201702, end: 201705
  4. IMATINIB. [Suspect]
     Active Substance: IMATINIB MESYLATE
     Indication: ACUTE LYMPHOCYTIC LEUKAEMIA
     Dosage: UNK
     Route: 065
  5. NILOTINIB HYDROCHLORIDE MONOHYDRATE [Suspect]
     Active Substance: NILOTINIB HYDROCHLORIDE MONOHYDRATE
     Indication: PRODUCT USED FOR UNKNOWN INDICATION
     Dosage: UNK
     Route: 065

REACTIONS (2)
  - Cytogenetic analysis abnormal [Unknown]
  - Product use in unapproved indication [Unknown]
